FAERS Safety Report 20829797 (Version 1)
Quarter: 2022Q2

REPORT INFORMATION
  Report Type: Spontaneous
  Country: KR (occurrence: KR)
  Receive Date: 20220513
  Receipt Date: 20220513
  Transmission Date: 20220721
  Serious: Yes (Death)
  Sender: FDA-Public Use
  Company Number: KR-BAYER-2022A068686

PATIENT
  Age: 16 Year
  Sex: Female

DRUGS (7)
  1. VITRAKVI [Suspect]
     Active Substance: LAROTRECTINIB
     Indication: Ovarian melanoma
     Dosage: UNK
  2. VITRAKVI [Suspect]
     Active Substance: LAROTRECTINIB
     Indication: Metastases to lymph nodes
  3. VITRAKVI [Suspect]
     Active Substance: LAROTRECTINIB
     Indication: Metastases to bone
  4. VITRAKVI [Suspect]
     Active Substance: LAROTRECTINIB
     Indication: Metastases to liver
  5. VITRAKVI [Suspect]
     Active Substance: LAROTRECTINIB
     Indication: Metastases to lung
  6. VITRAKVI [Suspect]
     Active Substance: LAROTRECTINIB
     Indication: Metastases to bone marrow
  7. PEMBROLIZUMAB [Concomitant]
     Active Substance: PEMBROLIZUMAB
     Indication: Malignant melanoma
     Dosage: UNK

REACTIONS (1)
  - Multiple organ dysfunction syndrome [Fatal]
